FAERS Safety Report 9552612 (Version 2)
Quarter: 2013Q4

REPORT INFORMATION
  Report Type: Spontaneous
  Country: US (occurrence: US)
  Receive Date: 20130925
  Receipt Date: 20131014
  Transmission Date: 20140711
  Serious: Yes (Life-Threatening, Hospitalization)
  Sender: FDA-Public Use
  Company Number: US-BRACCO-009929

PATIENT
  Age: 90 Year
  Sex: Female
  Weight: 73 kg

DRUGS (2)
  1. ANTIHYPERTENSIVES [Concomitant]
  2. MULTIHANCE [Suspect]
     Indication: NUCLEAR MAGNETIC RESONANCE IMAGING BRAIN
     Route: 042
     Dates: start: 20130918, end: 20130918

REACTIONS (1)
  - Cardiac arrest [Not Recovered/Not Resolved]
